FAERS Safety Report 18648095 (Version 2)
Quarter: 2020Q4

REPORT INFORMATION
  Report Type: Spontaneous
  Country: CN (occurrence: CN)
  Receive Date: 20201222
  Receipt Date: 20201231
  Transmission Date: 20210114
  Serious: Yes (Life-Threatening, Hospitalization, Other)
  Sender: FDA-Public Use
  Company Number: CN-DRREDDYS-USA/CHN/20/0130303

PATIENT
  Age: 54 Year
  Sex: Female

DRUGS (10)
  1. OLANZAPINE ODT 5 MG [Suspect]
     Active Substance: OLANZAPINE
     Dosage: DISINTEGRATING TABLETS
     Route: 048
     Dates: start: 20181128, end: 20181130
  2. HALOPERIDOL. [Suspect]
     Active Substance: HALOPERIDOL
     Indication: PRODUCT USED FOR UNKNOWN INDICATION
     Route: 030
     Dates: start: 20201129
  3. QUETIAPINE. [Suspect]
     Active Substance: QUETIAPINE
     Indication: MAJOR DEPRESSION
  4. ZOPICLONE [Concomitant]
     Active Substance: ZOPICLONE
     Route: 048
     Dates: start: 20181128, end: 20181128
  5. OLANZAPINE ODT 5 MG [Suspect]
     Active Substance: OLANZAPINE
     Indication: MAJOR DEPRESSION
     Dosage: DISINTEGRATING TABLETS
     Route: 048
     Dates: start: 20181127
  6. ZOPICLONE [Concomitant]
     Active Substance: ZOPICLONE
     Indication: INSOMNIA
     Route: 048
     Dates: start: 20181126, end: 20181126
  7. SERTRALINE [Suspect]
     Active Substance: SERTRALINE HYDROCHLORIDE
     Dates: start: 2017, end: 20181128
  8. CLONAZEPAM. [Concomitant]
     Active Substance: CLONAZEPAM
     Indication: ANXIETY
     Route: 048
     Dates: start: 20181128, end: 20181128
  9. SERTRALINE [Suspect]
     Active Substance: SERTRALINE HYDROCHLORIDE
     Indication: MAJOR DEPRESSION
     Dates: start: 20181130, end: 20181130
  10. CLONAZEPAM. [Concomitant]
     Active Substance: CLONAZEPAM
     Route: 048
     Dates: start: 20181126, end: 20181126

REACTIONS (3)
  - Neuroleptic malignant syndrome [Recovered/Resolved]
  - Blood prolactin increased [Unknown]
  - Acute myocardial infarction [Recovered/Resolved]

NARRATIVE: CASE EVENT DATE: 20181130
